FAERS Safety Report 8634610 (Version 2)
Quarter: 2013Q2

REPORT INFORMATION
  Report Type: Spontaneous
  Country: US (occurrence: US)
  Receive Date: 20120626
  Receipt Date: 20130422
  Transmission Date: 20140414
  Serious: Yes (Hospitalization)
  Sender: FDA-Public Use
  Company Number: US-BAYER-2012-061604

PATIENT
  Age: 57 Year
  Sex: Female
  Weight: 113 kg

DRUGS (12)
  1. YAZ [Suspect]
     Indication: ACNE
     Dosage: UNK
  2. YASMIN [Suspect]
     Indication: ACNE
  3. GIANVI [Suspect]
  4. OCELLA [Suspect]
     Indication: ACNE
  5. MICRONOR [Concomitant]
     Dosage: 80/25, UNK
  6. CARDURA [Concomitant]
     Dosage: 4 MG, DAILY
  7. NORVASC [Concomitant]
     Dosage: 10 MG, DAILY
  8. MICARDIS HCT [Concomitant]
     Dosage: 80MG/25 MG, UNK
  9. HYDROCODONE W/ACETAMINOPHEN [Concomitant]
     Dosage: 5MG-500MG, UNK
  10. DIAZEPAM [Concomitant]
     Dosage: 5 MG, UNK
  11. METOPROLOL [Concomitant]
     Dosage: 50 MG, DAILY
  12. XANAX [Concomitant]
     Indication: ANXIETY
     Dosage: UNK UNK, AS NEEDED

REACTIONS (5)
  - Pulmonary embolism [None]
  - Deep vein thrombosis [None]
  - Injury [None]
  - Pain [None]
  - Pain [None]
